FAERS Safety Report 13748843 (Version 2)
Quarter: 2017Q3

REPORT INFORMATION
  Report Type: Other
  Country: IT (occurrence: IT)
  Receive Date: 20170713
  Receipt Date: 20170803
  Transmission Date: 20171127
  Serious: Yes (Life-Threatening, Hospitalization, Other)
  Sender: FDA-Public Use
  Company Number: IT-MLMSERVICE-20170705-0794273-1

PATIENT
  Age: 28 Year

DRUGS (2)
  1. AMOXICILLIN AND CALVULANIC ACID [Suspect]
     Active Substance: AMOXICILLIN\CLAVULANIC ACID
  2. OXYGEN 100% [Suspect]
     Active Substance: OXYGEN
     Indication: RESPIRATORY FAILURE

REACTIONS (2)
  - Drug ineffective [None]
  - Respiratory failure [None]
